FAERS Safety Report 18648331 (Version 1)
Quarter: 2020Q4

REPORT INFORMATION
  Report Type: Spontaneous
  Country: US (occurrence: US)
  Receive Date: 20201222
  Receipt Date: 20201222
  Transmission Date: 20210114
  Serious: Yes (Other)
  Sender: FDA-Public Use
  Company Number: None

PATIENT
  Age: 82 Year
  Sex: Female
  Weight: 66.6 kg

DRUGS (1)
  1. CASIRIVIMAB (REGN10933) 1,200 MG, IMDEVIMAB (REGN10987) [Suspect]
     Active Substance: CASIRIVIMAB\IMDEVIMAB
     Indication: COVID-19
     Dosage: ?          OTHER FREQUENCY:ONCE;?
     Route: 042
     Dates: start: 20201217, end: 20201217

REACTIONS (3)
  - Chest discomfort [None]
  - Abdominal pain upper [None]
  - Infusion related reaction [None]

NARRATIVE: CASE EVENT DATE: 20201217
